FAERS Safety Report 20804765 (Version 1)
Quarter: 2022Q2

REPORT INFORMATION
  Report Type: Spontaneous
  Country: JP (occurrence: JP)
  Receive Date: 20220509
  Receipt Date: 20220509
  Transmission Date: 20220721
  Serious: Yes (Other)
  Sender: FDA-Public Use
  Company Number: JP-DSJP-DSJ-2022-115175

PATIENT
  Age: 70 Year
  Sex: Female

DRUGS (1)
  1. DENOSUMAB [Suspect]
     Active Substance: DENOSUMAB
     Indication: Product used for unknown indication
     Dosage: UNK
     Route: 065
     Dates: start: 2017

REACTIONS (6)
  - Abscess jaw [Not Recovered/Not Resolved]
  - Osteonecrosis of jaw [Not Recovered/Not Resolved]
  - Gingival pain [Not Recovered/Not Resolved]
  - Pain in jaw [Not Recovered/Not Resolved]
  - Jaw disorder [Not Recovered/Not Resolved]
  - Toothache [Unknown]

NARRATIVE: CASE EVENT DATE: 20210101
